FAERS Safety Report 4855579-2 (Version None)
Quarter: 2005Q4

REPORT INFORMATION
  Report Type: 
  Country: None (occurrence: None)
  Receive Date: 20051214
  Receipt Date: 20051129
  Transmission Date: 20060501
  Serious: Yes (Life-Threatening, Hospitalization)
  Sender: FDA-Public Use
  Company Number: 2005-0008483

PATIENT
  Age: 43 Year
  Sex: Male
  Weight: 60 kg

DRUGS (4)
  1. EMTRIVA [Suspect]
     Indication: HIV INFECTION
     Dosage: 200 MG, 1 IN 1 D, ORAL
     Route: 048
     Dates: start: 20040524, end: 20050702
  2. VIREAD [Suspect]
     Indication: HIV INFECTION
     Dosage: 300 MG, 1 IN 1 D, ORAL
     Route: 048
     Dates: start: 20040524, end: 20050702
  3. VIREAD [Suspect]
     Indication: HIV INFECTION
     Dosage: 300 MG, 1 IN 1 D, ORAL
     Route: 048
     Dates: start: 20050923
  4. SUSTIVA [Suspect]
     Indication: HIV INFECTION
     Dosage: 600 MG, 1 IN 1 D, ORAL
     Route: 048
     Dates: start: 20040524, end: 20050702

REACTIONS (49)
  - ACTIVATED PARTIAL THROMBOPLASTIN TIME PROLONGED [None]
  - AGGRESSION [None]
  - ASCITES [None]
  - ASPARTATE AMINOTRANSFERASE INCREASED [None]
  - ATELECTASIS [None]
  - BACTERIA SPUTUM IDENTIFIED [None]
  - BETA HAEMOLYTIC STREPTOCOCCAL INFECTION [None]
  - BLOOD ALKALINE PHOSPHATASE INCREASED [None]
  - BLOOD CALCIUM DECREASED [None]
  - BLOOD CREATININE INCREASED [None]
  - BLOOD PHOSPHORUS DECREASED [None]
  - BLOOD URINE PRESENT [None]
  - BRAIN STEM SYNDROME [None]
  - BRONCHITIS BACTERIAL [None]
  - CANDIDIASIS [None]
  - CEREBRAL ATROPHY [None]
  - CEREBRAL ISCHAEMIA [None]
  - CHLAMYDIAL INFECTION [None]
  - COGNITIVE DISORDER [None]
  - DELIRIUM [None]
  - DISEASE RECURRENCE [None]
  - FRONTAL LOBE EPILEPSY [None]
  - GAMMA-GLUTAMYLTRANSFERASE INCREASED [None]
  - GASTRITIS [None]
  - HAEMATOCRIT DECREASED [None]
  - HAEMOGLOBIN DECREASED [None]
  - HEPATIC STEATOSIS [None]
  - HYPERTENSION [None]
  - HYPOGLYCAEMIA [None]
  - ILEUS PARALYTIC [None]
  - LACTIC ACIDOSIS [None]
  - LEGIONELLA SEROLOGY POSITIVE [None]
  - LUNG INFILTRATION [None]
  - METABOLIC ACIDOSIS [None]
  - MIOSIS [None]
  - PANCREATIC CYST [None]
  - PANCREATITIS ACUTE [None]
  - PARESIS [None]
  - PLEURAL EFFUSION [None]
  - PNEUMONIA [None]
  - PROTEIN TOTAL INCREASED [None]
  - PROTEIN URINE PRESENT [None]
  - RED BLOOD CELL COUNT INCREASED [None]
  - RED CELL DISTRIBUTION WIDTH INCREASED [None]
  - RENAL IMPAIRMENT [None]
  - STAPHYLOCOCCAL INFECTION [None]
  - URINE KETONE BODY PRESENT [None]
  - WERNICKE-KORSAKOFF SYNDROME [None]
  - WHITE BLOOD CELL COUNT INCREASED [None]
